FAERS Safety Report 6751977-0 (Version None)
Quarter: 2010Q2

REPORT INFORMATION
  Report Type: 
  Country: None (occurrence: None)
  Receive Date: 20100602
  Receipt Date: 20100524
  Transmission Date: 20101027
  Serious: Yes (Other)
  Sender: FDA-Public Use
  Company Number: US-PFIZER INC-2010065707

PATIENT
  Sex: Female
  Weight: 92.971 kg

DRUGS (7)
  1. CHANTIX [Suspect]
     Indication: SMOKING CESSATION THERAPY
     Dosage: 0.5 MG, 1X/DAY
     Route: 048
     Dates: start: 20100518, end: 20100501
  2. CHANTIX [Suspect]
     Dosage: 0.5 MG, 2X/DAY
     Route: 048
     Dates: start: 20100501, end: 20100523
  3. CELEBREX [Concomitant]
     Indication: ARTHRITIS
     Dosage: 200 MG, DAILY
  4. TOPROL-XL [Concomitant]
     Indication: ARRHYTHMIA
     Dosage: UNK
  5. WARFARIN [Concomitant]
     Dosage: UNK
  6. SPIRIVA [Concomitant]
     Indication: LUNG INFECTION
     Dosage: UNK, DAILY
  7. ADVAIR DISKUS 100/50 [Concomitant]
     Indication: LUNG INFECTION
     Dosage: UNK, 2X/DAY

REACTIONS (4)
  - DYSPHAGIA [None]
  - EYE HAEMORRHAGE [None]
  - PARAESTHESIA [None]
  - PHARYNGEAL OEDEMA [None]
